FAERS Safety Report 6862126-2 (Version None)
Quarter: 2010Q3

REPORT INFORMATION
  Report Type: 
  Country: None (occurrence: None)
  Receive Date: 20100721
  Receipt Date: 20100713
  Transmission Date: 20110219
  Serious: Yes (Death, Hospitalization, Other)
  Sender: FDA-Public Use
  Company Number: PHFR2010GB01261

PATIENT
  Sex: Male

DRUGS (3)
  1. CLOZARIL [Suspect]
     Indication: SCHIZOPHRENIA
     Dosage: 600 MG, UNK
     Dates: start: 20031013
  2. CLOZARIL [Suspect]
     Dosage: 900 MG, UNK
  3. AMISULPRIDE [Concomitant]
     Dosage: 100 MG, BID

REACTIONS (13)
  - ANAEMIA [None]
  - CARDIAC ARREST [None]
  - CARDIAC FAILURE [None]
  - CARDIOMYOPATHY [None]
  - DECREASED APPETITE [None]
  - DYSPNOEA [None]
  - HYPOTENSION [None]
  - MALAISE [None]
  - PALLOR [None]
  - PALPITATIONS [None]
  - PULMONARY OEDEMA [None]
  - SINUS TACHYCARDIA [None]
  - WEIGHT DECREASED [None]
